FAERS Safety Report 18709996 (Version 1)
Quarter: 2021Q1

REPORT INFORMATION
  Report Type: Spontaneous
  Country: US (occurrence: US)
  Receive Date: 20210106
  Receipt Date: 20210106
  Transmission Date: 20210419
  Serious: Yes (Other)
  Sender: FDA-Public Use
  Company Number: US-009507513-2101USA001282

PATIENT
  Age: 54 Year
  Sex: Female

DRUGS (1)
  1. FOSAMAX [Suspect]
     Active Substance: ALENDRONATE SODIUM
     Indication: OSTEOPOROSIS
     Dosage: 1 DF, 1/WEEK
     Route: 048
     Dates: start: 20151208, end: 20151208

REACTIONS (13)
  - Atrial fibrillation [Unknown]
  - Recalled product administered [Unknown]
  - Respiratory rate increased [Unknown]
  - Diarrhoea [Unknown]
  - Muscle spasms [Unknown]
  - Musculoskeletal stiffness [Unknown]
  - Myalgia [Unknown]
  - Abdominal discomfort [Unknown]
  - Dyspnoea [Unknown]
  - Hypoaesthesia [Unknown]
  - Paraesthesia [Unknown]
  - Pain [Unknown]
  - Flatulence [Unknown]

NARRATIVE: CASE EVENT DATE: 201512
